FAERS Safety Report 26022380 (Version 3)
Quarter: 2025Q4

REPORT INFORMATION
  Report Type: Report from Study
  Country: US (occurrence: US)
  Receive Date: 20251110
  Receipt Date: 20251216
  Transmission Date: 20260118
  Serious: Yes (Other)
  Sender: PFIZER
  Company Number: US-PFIZER INC-PV202500125415

PATIENT
  Age: 64 Year
  Sex: Female

DRUGS (3)
  1. LEVOXYL [Suspect]
     Active Substance: LEVOTHYROXINE SODIUM
     Indication: Blood thyroid stimulating hormone
     Dosage: 50 UG
     Route: 048
  2. LEVOXYL [Suspect]
     Active Substance: LEVOTHYROXINE SODIUM
     Dosage: 0.137 MCG AN EXTRA HALF A PILL FOR 4 WEEKS
  3. LEVOXYL [Suspect]
     Active Substance: LEVOTHYROXINE SODIUM
     Dosage: 0.137 MCG AN EXTRA HALF A PILL AND TAKE HALF OF THE 50MCG ON TUESDAY AND HALF ON SATURDAY

REACTIONS (3)
  - Cardiac disorder [Unknown]
  - Insomnia [Unknown]
  - Product odour abnormal [Unknown]
